FAERS Safety Report 24669248 (Version 7)
Quarter: 2025Q1

REPORT INFORMATION
  Report Type: Report from Study
  Country: CA (occurrence: CA)
  Receive Date: 20241127
  Receipt Date: 20250102
  Transmission Date: 20250409
  Serious: No
  Sender: ROCHE
  Company Number: CA-ROCHE-10000126360

PATIENT
  Age: 28 Year
  Sex: Female

DRUGS (5)
  1. OCREVUS [Suspect]
     Active Substance: OCRELIZUMAB
     Indication: Relapsing-remitting multiple sclerosis
     Dosage: MORE DOSAGE INFORMATION IS 300 MG AT DAY 0 AND 14, THEN 600 MG EVERY 6 MONTHS
     Route: 042
     Dates: start: 20240418
  2. OCREVUS [Suspect]
     Active Substance: OCRELIZUMAB
     Dosage: MORE DOSAGE INFORMATION IS 300 MG AT DAY 0 AND 14, THEN 600 MG EVERY 6 MONTHS
     Route: 042
  3. ACETAMINOPHEN [Concomitant]
     Active Substance: ACETAMINOPHEN
     Route: 048
  4. METHYLPREDNISOLONE [Concomitant]
     Active Substance: METHYLPREDNISOLONE
     Route: 042
  5. DIPHENHYDRAMINE [Concomitant]
     Active Substance: DIPHENHYDRAMINE
     Route: 048

REACTIONS (16)
  - Nasopharyngitis [Not Recovered/Not Resolved]
  - Cough [Not Recovered/Not Resolved]
  - Rhinorrhoea [Not Recovered/Not Resolved]
  - Productive cough [Unknown]
  - Headache [Recovered/Resolved]
  - Vascular injury [Unknown]
  - Bite [Unknown]
  - Wound complication [Unknown]
  - Atypical pneumonia [Recovering/Resolving]
  - Diplopia [Not Recovered/Not Resolved]
  - Sinusitis [Unknown]
  - Illness [Unknown]
  - Therapeutic response shortened [Unknown]
  - Animal scratch [Unknown]
  - Infection [Unknown]
  - Acne [Unknown]

NARRATIVE: CASE EVENT DATE: 20241102
